FAERS Safety Report 15364481 (Version 1)
Quarter: 2018Q3

REPORT INFORMATION
  Report Type: Spontaneous
  Country: DE (occurrence: DE)
  Receive Date: 20180909
  Receipt Date: 20180909
  Transmission Date: 20181010
  Serious: Yes (Hospitalization)
  Sender: FDA-Public Use
  Company Number: PHHY2015DE178193

PATIENT
  Age: 70 Year
  Sex: Female
  Weight: 80 kg

DRUGS (17)
  1. BEVACIZUMAB. [Suspect]
     Active Substance: BEVACIZUMAB
     Indication: PRODUCT USED FOR UNKNOWN INDICATION
     Dosage: 1200 MG, Q3W
     Route: 042
     Dates: start: 20150702, end: 20150702
  2. DULCOLAX (BISACODYL) [Concomitant]
     Active Substance: BISACODYL
     Indication: CONSTIPATION
     Route: 048
  3. CARBOPLATIN. [Suspect]
     Active Substance: CARBOPLATIN
     Dosage: 550 MG, Q3W
     Route: 042
     Dates: start: 20150723, end: 20150723
  4. CARBOPLATIN. [Suspect]
     Active Substance: CARBOPLATIN
     Dosage: 550 MG, Q3W
     Route: 042
     Dates: start: 20150910
  5. PACLITAXEL. [Concomitant]
     Active Substance: PACLITAXEL
     Indication: OVARIAN CANCER
     Dosage: 337 MG, UNK
     Route: 042
     Dates: start: 20150521, end: 20150521
  6. CARBOPLATIN. [Suspect]
     Active Substance: CARBOPLATIN
     Indication: PRODUCT USED FOR UNKNOWN INDICATION
     Dosage: 540 MG, Q3W
     Route: 042
     Dates: start: 20150521, end: 20150521
  7. BEVACIZUMAB. [Suspect]
     Active Substance: BEVACIZUMAB
     Dosage: 1200 MG, Q3W
     Route: 042
     Dates: start: 20151102, end: 20151102
  8. DEXAMETHASONE. [Concomitant]
     Active Substance: DEXAMETHASONE
     Indication: NAUSEA
     Dosage: 8 MG, UNK
     Route: 042
  9. PACLITAXEL. [Concomitant]
     Active Substance: PACLITAXEL
     Dosage: 337 MG, UNK
     Route: 042
     Dates: start: 20150611, end: 20150611
  10. TAVEGIL [Concomitant]
     Active Substance: CLEMASTINE FUMARATE
     Indication: HYPERSENSITIVITY
     Dosage: 2 MG, UNK
     Route: 042
  11. CARBOPLATIN. [Suspect]
     Active Substance: CARBOPLATIN
     Dosage: 550 MG, Q3W
     Route: 042
     Dates: start: 20150820, end: 20150820
  12. ALOXI [Concomitant]
     Active Substance: PALONOSETRON HYDROCHLORIDE
     Indication: NAUSEA
     Dosage: 250 UG, UNK
     Route: 042
  13. MCP [Concomitant]
     Active Substance: METOCLOPRAMIDE HYDROCHLORIDE
     Indication: NAUSEA
     Route: 048
  14. CARBOPLATIN. [Suspect]
     Active Substance: CARBOPLATIN
     Dosage: 660 MG, Q3W
     Route: 042
     Dates: start: 20150702, end: 20150702
  15. DEXAMETHASONE. [Concomitant]
     Active Substance: DEXAMETHASONE
     Dosage: 8 MG, UNK
     Route: 048
  16. RANITIDIN [Concomitant]
     Active Substance: RANITIDINE HYDROCHLORIDE
     Indication: PRODUCT USED FOR UNKNOWN INDICATION
     Dosage: 50 MG, UNK
     Route: 042
  17. CARBOPLATIN. [Suspect]
     Active Substance: CARBOPLATIN
     Dosage: 550 MG, Q3W
     Route: 042
     Dates: start: 20150611, end: 20150611

REACTIONS (10)
  - Faecaloma [Recovered/Resolved]
  - Leukopenia [Recovered/Resolved]
  - Oedema [Recovered/Resolved]
  - Dyspnoea [Recovered/Resolved]
  - Dysphonia [Recovered/Resolved]
  - Subileus [Recovered/Resolved]
  - Hypertension [Recovering/Resolving]
  - Protein urine present [Recovered/Resolved]
  - Oropharyngeal pain [Recovered/Resolved]
  - Pain in extremity [Recovering/Resolving]

NARRATIVE: CASE EVENT DATE: 20150525
